FAERS Safety Report 7457928-8 (Version None)
Quarter: 2011Q2

REPORT INFORMATION
  Report Type: 
  Country: None (occurrence: None)
  Receive Date: 20110504
  Receipt Date: 20110429
  Transmission Date: 20111010
  Serious: Yes (Other)
  Sender: FDA-Public Use
  Company Number: SG-PFIZER INC-2011093239

PATIENT
  Age: 31 Year
  Sex: Female

DRUGS (2)
  1. TAZOCIN [Concomitant]
     Indication: RENAL ABSCESS
     Dosage: 4.5 G, 4X/DAY
     Route: 042
     Dates: start: 20100422
  2. GABAPENTIN [Suspect]
     Indication: NEURALGIA
     Dosage: 300 MG, 1X/DAY
     Route: 048
     Dates: end: 20100509

REACTIONS (1)
  - NEUTROPENIA [None]
